FAERS Safety Report 21503013 (Version 1)
Quarter: 2022Q4

REPORT INFORMATION
  Report Type: Spontaneous
  Country: US (occurrence: None)
  Receive Date: 20221024
  Receipt Date: 20221024
  Transmission Date: 20230113
  Serious: Yes (Hospitalization)
  Sender: FDA-Public Use
  Company Number: None

PATIENT
  Age: 76 Year
  Sex: Female
  Weight: 77.5 kg

DRUGS (1)
  1. ATORVASTATIN [Suspect]
     Active Substance: ATORVASTATIN
     Indication: Hyperlipidaemia
     Dosage: FREQUENCY : DAILY;?
     Route: 048
     Dates: start: 20190913, end: 20221019

REACTIONS (9)
  - Acute kidney injury [None]
  - Diarrhoea [None]
  - Malaise [None]
  - Liver injury [None]
  - Myalgia [None]
  - Gait disturbance [None]
  - Rhabdomyolysis [None]
  - Metabolic acidosis [None]
  - Acute respiratory failure [None]

NARRATIVE: CASE EVENT DATE: 20221019
